FAERS Safety Report 19828161 (Version 10)
Quarter: 2022Q1

REPORT INFORMATION
  Report Type: Report from Study
  Country: US (occurrence: US)
  Receive Date: 20210914
  Receipt Date: 20220122
  Transmission Date: 20220424
  Serious: Yes (Other)
  Sender: FDA-Public Use
  Company Number: US-NOVARTISPH-NVSC2021US207551

PATIENT
  Sex: Male

DRUGS (2)
  1. ENTRESTO [Suspect]
     Active Substance: SACUBITRIL\VALSARTAN
     Indication: Product used for unknown indication
     Dosage: 50 MG, BID (49/51MG)
     Route: 048
     Dates: start: 20210814
  2. ENTRESTO [Suspect]
     Active Substance: SACUBITRIL\VALSARTAN
     Dosage: 100 MG, BID (49/51 MG)
     Route: 048

REACTIONS (9)
  - Diabetes mellitus [Unknown]
  - Blood glucose increased [Not Recovered/Not Resolved]
  - Red blood cell abnormality [Unknown]
  - White blood cell disorder [Unknown]
  - Platelet production decreased [Unknown]
  - Fluid retention [Unknown]
  - Weight decreased [Unknown]
  - Bursitis [Unknown]
  - Muscular weakness [Unknown]
